FAERS Safety Report 9433744 (Version 2)
Quarter: 2013Q3

REPORT INFORMATION
  Report Type: Spontaneous
  Country: JP (occurrence: JP)
  Receive Date: 20130731
  Receipt Date: 20130807
  Transmission Date: 20140515
  Serious: Yes (Other)
  Sender: FDA-Public Use
  Company Number: JP-UCBSA-093368

PATIENT
  Sex: 0

DRUGS (2)
  1. E KEPPRA [Suspect]
     Route: 048
  2. ZYVOX [Suspect]

REACTIONS (2)
  - Pancytopenia [Unknown]
  - Platelet count decreased [Unknown]
